FAERS Safety Report 10666360 (Version 3)
Quarter: 2018Q3

REPORT INFORMATION
  Report Type: Spontaneous
  Country: US (occurrence: US)
  Receive Date: 20141220
  Receipt Date: 20180921
  Transmission Date: 20181010
  Serious: No
  Sender: FDA-Public Use
  Company Number: US-009507513-1412USA007120

PATIENT
  Age: 29 Year
  Sex: Female

DRUGS (7)
  1. ZIDOVUDINE. [Suspect]
     Active Substance: ZIDOVUDINE
     Dosage: COURSE NUMBER: 1, DOSE 2 (UNIT WAS NOT PROVIDED) DAILY
     Route: 042
  2. RALTEGRAVIR POTASSIUM [Suspect]
     Active Substance: RALTEGRAVIR POTASSIUM
     Dosage: COURSE NUMBER 1; TOTAL DAILY DOSE 800 (UNIT WAS NOT PROVIDED)
     Route: 048
  3. ZIDOVUDINE. [Suspect]
     Active Substance: ZIDOVUDINE
     Dosage: COURSE NUMBER: 2, DOSE 1 (UNIT WAS NOT PROVIDED) DAILY
  4. EMTRICITABINE (+) TENOFOVIR DISOPROXIL FUMARATE [Suspect]
     Active Substance: EMTRICITABINE\TENOFOVIR DISOPROXIL
     Dosage: COURSE NUMBER 1; TOTAL DAILY DOSE 1 (UNIT WAS NOT PROVIDED)
     Route: 048
  5. ATAZANAVIR SULFATE. [Suspect]
     Active Substance: ATAZANAVIR SULFATE
     Dosage: COURSE NUMBER 1; TOTAL DAILY DOSE 300 (UNIT WAS NOT PROVIDED)
     Route: 048
     Dates: end: 2014
  6. ATAZANAVIR SULFATE. [Suspect]
     Active Substance: ATAZANAVIR SULFATE
     Dosage: COURSE NUMBER 2; TOTAL DAILY DOSE 400 (UNIT WAS NOT PROVIDED)
     Route: 048
  7. RITONAVIR. [Suspect]
     Active Substance: RITONAVIR
     Dosage: COURSE NUMBER 1; TOTAL DAILY DOSE 100 (UNIT WAS NOT PROVIDED)
     Route: 048

REACTIONS (1)
  - Maternal exposure during pregnancy [Recovered/Resolved]
